FAERS Safety Report 5808365-0 (Version None)
Quarter: 2008Q3

REPORT INFORMATION
  Report Type: 
  Country: None (occurrence: None)
  Receive Date: 20080714
  Receipt Date: 20080704
  Transmission Date: 20090109
  Serious: Yes (Hospitalization, Other)
  Sender: FDA-Public Use
  Company Number: PHHY2008NZ13350

PATIENT
  Sex: Male

DRUGS (2)
  1. TEGRETOL [Suspect]
     Indication: TRIGEMINAL NEURALGIA
     Dosage: 100 MG, 10QD
  2. MORPHINE [Concomitant]
     Dosage: UNK

REACTIONS (7)
  - ASTHENIA [None]
  - BALANCE DISORDER [None]
  - CARDIAC MONITORING [None]
  - DRUG ADMINISTRATION ERROR [None]
  - FEEDING DISORDER [None]
  - INCORRECT DOSE ADMINISTERED [None]
  - SOMNOLENCE [None]
